FAERS Safety Report 18599256 (Version 1)
Quarter: 2020Q4

REPORT INFORMATION
  Report Type: Spontaneous
  Country: US (occurrence: US)
  Receive Date: 20201209
  Receipt Date: 20201209
  Transmission Date: 20210114
  Serious: Yes (Life-Threatening, Disabling)
  Sender: FDA-Public Use
  Company Number: None

PATIENT
  Age: 78 Year
  Sex: Male
  Weight: 92.99 kg

DRUGS (6)
  1. YERVOY [Suspect]
     Active Substance: IPILIMUMAB
     Indication: MALIGNANT MELANOMA
     Dosage: ?          OTHER ROUTE:INFUSION-ONCE A MONTH?
     Dates: start: 20200629, end: 20200722
  2. EPLERENONE. [Concomitant]
     Active Substance: EPLERENONE
  3. AMLODIPINE [Concomitant]
     Active Substance: AMLODIPINE BESYLATE
  4. OPDIVO [Suspect]
     Active Substance: NIVOLUMAB
  5. METOPROLOL. [Concomitant]
     Active Substance: METOPROLOL
  6. BENEZIPRIL [Concomitant]

REACTIONS (8)
  - Dyspnoea [None]
  - Gait disturbance [None]
  - Liver injury [None]
  - Speech disorder [None]
  - Product complaint [None]
  - Muscle injury [None]
  - Weight decreased [None]
  - Dysphagia [None]

NARRATIVE: CASE EVENT DATE: 20200626
